FAERS Safety Report 7491011-0 (Version None)
Quarter: 2011Q2

REPORT INFORMATION
  Report Type: 
  Country: None (occurrence: None)
  Receive Date: 20110519
  Receipt Date: 20110504
  Transmission Date: 20111010
  Serious: Yes (Hospitalization, Other)
  Sender: FDA-Public Use
  Company Number: US-ACTELION-A-US2011-45977

PATIENT

DRUGS (4)
  1. VENTAVIS [Suspect]
     Indication: PULMONARY ARTERIAL HYPERTENSION
     Dosage: X6/DAY
     Route: 055
     Dates: start: 20080529
  2. TRACLEER [Concomitant]
     Indication: PULMONARY ARTERIAL HYPERTENSION
     Route: 048
  3. CALCIUM CHANNEL BLOCKERS [Concomitant]
  4. REVATIO [Concomitant]

REACTIONS (4)
  - TRANSFUSION [None]
  - HAEMORRHAGE [None]
  - HAEMATOCHEZIA [None]
  - ANAEMIA [None]
